FAERS Safety Report 15710750 (Version 1)
Quarter: 2018Q4

REPORT INFORMATION
  Report Type: Spontaneous
  Country: US (occurrence: US)
  Receive Date: 20181211
  Receipt Date: 20181211
  Transmission Date: 20190205
  Serious: No
  Sender: FDA-Public Use
  Company Number: US-BIOMARINAP-US-2018-121080

PATIENT
  Sex: Male
  Weight: 20.3 kg

DRUGS (1)
  1. VIMIZIM [Suspect]
     Active Substance: ELOSULFASE ALFA
     Indication: MUCOPOLYSACCHARIDOSIS IV
     Dosage: 40 MILLIGRAM, QW
     Route: 042
     Dates: start: 20170504

REACTIONS (4)
  - Weight increased [Unknown]
  - Mobility decreased [Unknown]
  - Bone deformity [Unknown]
  - Bone pain [Unknown]
